FAERS Safety Report 7587588-7 (Version None)
Quarter: 2011Q3

REPORT INFORMATION
  Report Type: 
  Country: None (occurrence: None)
  Receive Date: 20110704
  Receipt Date: 20110621
  Transmission Date: 20111222
  Serious: Yes (Other)
  Sender: FDA-Public Use
  Company Number: PHHY2011DE55050

PATIENT
  Age: 54 Year
  Sex: Male

DRUGS (3)
  1. CHEMOTHERAPEUTICS NOS [Concomitant]
  2. ZOMETA [Suspect]
     Dosage: UNK
     Dates: start: 20021201, end: 20040601
  3. PAMIDRONATE DISODIUM [Suspect]
     Dosage: UNK
     Dates: start: 20021001, end: 20021201

REACTIONS (2)
  - OSTEONECROSIS OF JAW [None]
  - OSTEOMYELITIS [None]
